FAERS Safety Report 11810955 (Version 1)
Quarter: 2015Q4

REPORT INFORMATION
  Report Type: Report from Study
  Country: AU (occurrence: AU)
  Receive Date: 20151208
  Receipt Date: 20151208
  Transmission Date: 20160305
  Serious: Yes (Disabling, Other)
  Sender: FDA-Public Use
  Company Number: AU-ABBVIE-15K-008-1512017-00

PATIENT
  Sex: Female

DRUGS (3)
  1. XELJANZ [Suspect]
     Active Substance: TOFACITINIB CITRATE
     Indication: PRODUCT USED FOR UNKNOWN INDICATION
     Route: 058
     Dates: start: 201507
  2. ENBREL [Suspect]
     Active Substance: ETANERCEPT
     Indication: PRODUCT USED FOR UNKNOWN INDICATION
     Route: 065
  3. HUMIRA [Suspect]
     Active Substance: ADALIMUMAB
     Indication: RHEUMATOID ARTHRITIS
     Route: 058

REACTIONS (7)
  - Staphylococcal infection [Not Recovered/Not Resolved]
  - Ear infection staphylococcal [Unknown]
  - Rheumatoid arthritis [Unknown]
  - Deformity [Not Recovered/Not Resolved]
  - Infection [Unknown]
  - Mobility decreased [Not Recovered/Not Resolved]
  - Joint arthroplasty [Not Recovered/Not Resolved]

NARRATIVE: CASE EVENT DATE: 201507
